FAERS Safety Report 12952626 (Version 2)
Quarter: 2016Q4

REPORT INFORMATION
  Report Type: Spontaneous
  Country: TW (occurrence: TW)
  Receive Date: 20161117
  Receipt Date: 20161123
  Transmission Date: 20170207
  Serious: Yes (Hospitalization)
  Sender: FDA-Public Use
  Company Number: PHHY2016TW155885

PATIENT
  Age: 26 Year
  Sex: Female
  Weight: 42.6 kg

DRUGS (6)
  1. DAPTOMYCIN. [Suspect]
     Active Substance: DAPTOMYCIN
     Indication: STAPHYLOCOCCAL INFECTION
     Dosage: 350 MG,ONE INJECTION EVERY 2 DAYS
     Route: 065
     Dates: start: 20110302, end: 20110328
  2. PHENYTOIN. [Suspect]
     Active Substance: PHENYTOIN
     Indication: EPILEPSY
     Dosage: DOSE OF 2 GRANULES AFTER BREAKFAST AND DINNER
     Route: 048
     Dates: start: 2004
  3. METHYLPREDNISOLONE. [Concomitant]
     Active Substance: METHYLPREDNISOLONE
     Indication: SYSTEMIC LUPUS ERYTHEMATOSUS
     Dosage: AFTER BREAKFAST AND DINNER AT THE DOSE OF 1 TABLET
     Route: 065
     Dates: start: 2008
  4. CARBAMAZEPINE. [Suspect]
     Active Substance: CARBAMAZEPINE
     Indication: EPILEPSY
     Dosage: DOSE OF 3 GRANULES AFTER BREAKFAST AND DINNER
     Route: 048
     Dates: start: 2004
  5. DAPTOMYCIN. [Suspect]
     Active Substance: DAPTOMYCIN
     Dosage: 500 MG, ONE INJECTION EVERY 2 DAYS
     Route: 065
     Dates: start: 20110408, end: 20110416
  6. TOPIRAMATE. [Suspect]
     Active Substance: TOPIRAMATE
     Indication: EPILEPSY
     Dosage: ONE GRANULE AFTER BREAKFAST, 2 GRANULES AFTER DINNER
     Route: 048
     Dates: start: 2004

REACTIONS (11)
  - Epilepsy [Unknown]
  - Arthritis bacterial [Unknown]
  - Arthralgia [Unknown]
  - Loss of consciousness [Unknown]
  - Seizure [Unknown]
  - Chronic kidney disease [Unknown]
  - Leukocytosis [Unknown]
  - Pleural effusion [Unknown]
  - Staphylococcal infection [Recovered/Resolved]
  - Pyrexia [Unknown]
  - Osteonecrosis [Unknown]

NARRATIVE: CASE EVENT DATE: 2008
